FAERS Safety Report 5827168-4 (Version None)
Quarter: 2008Q3

REPORT INFORMATION
  Report Type: 
  Country: None (occurrence: None)
  Receive Date: 20080724
  Receipt Date: 20080714
  Transmission Date: 20090109
  Serious: Yes (Other)
  Sender: FDA-Public Use
  Company Number: CHNY2008AU02779

PATIENT
  Sex: Female

DRUGS (1)
  1. NICOTINELL GUM 2 MG FRUIT (NCH) (NICOTINE) CHEWABLE GUM [Suspect]
     Indication: SMOKING CESSATION THERAPY
     Dosage: 2 MG, ONCE/SINGLE, CHEWED
     Dates: start: 20080714, end: 20080714

REACTIONS (9)
  - GLOSSITIS [None]
  - GLOSSODYNIA [None]
  - OBSTRUCTIVE AIRWAYS DISORDER [None]
  - ORAL DISCOMFORT [None]
  - OROPHARYNGEAL PAIN [None]
  - PHARYNGEAL OEDEMA [None]
  - SWOLLEN TONGUE [None]
  - THROAT IRRITATION [None]
  - TONGUE DISORDER [None]
